FAERS Safety Report 7961116-6 (Version None)
Quarter: 2011Q4

REPORT INFORMATION
  Report Type: 
  Country: None (occurrence: None)
  Receive Date: 20111201
  Receipt Date: 20111201
  Transmission Date: 20120403
  Serious: No
  Sender: FDA-Public Use
  Company Number: None

PATIENT
  Sex: Female
  Weight: 121.9 kg

DRUGS (1)
  1. DOXORUBICIN HCL [Suspect]
     Dosage: 160200 MG

REACTIONS (1)
  - ACUTE MYELOID LEUKAEMIA [None]
